FAERS Safety Report 15312698 (Version 1)
Quarter: 2018Q3

REPORT INFORMATION
  Report Type: Spontaneous
  Country: FR (occurrence: FR)
  Receive Date: 20180823
  Receipt Date: 20180823
  Transmission Date: 20181010
  Serious: Yes (Other)
  Sender: FDA-Public Use
  Company Number: FR-SA-2018SA221163

PATIENT
  Age: 23 Year
  Sex: Male

DRUGS (1)
  1. CHLOROQUINE. [Suspect]
     Active Substance: CHLOROQUINE
     Dosage: 1 G

REACTIONS (5)
  - Overdose [Unknown]
  - Nausea [Unknown]
  - Vomiting [Unknown]
  - Depressed level of consciousness [Unknown]
  - Sinus tachycardia [Unknown]
